FAERS Safety Report 13797469 (Version 1)
Quarter: 2017Q3

REPORT INFORMATION
  Report Type: Spontaneous
  Country: US (occurrence: US)
  Receive Date: 20170727
  Receipt Date: 20170727
  Transmission Date: 20171127
  Serious: Yes (Other)
  Sender: FDA-Public Use
  Company Number: US-SUN PHARMACEUTICAL INDUSTRIES LTD-2017US-146196

PATIENT
  Age: 25 Year
  Sex: Female

DRUGS (2)
  1. BETAMETHASONE. [Suspect]
     Active Substance: BETAMETHASONE
     Indication: LUNG DISORDER
     Dosage: UNK
     Route: 065
  2. HYDROCORTISONE. [Suspect]
     Active Substance: HYDROCORTISONE
     Indication: LUNG DISORDER
     Route: 065

REACTIONS (3)
  - Adrenal haemorrhage [Recovered/Resolved]
  - Exposure during pregnancy [Recovered/Resolved]
  - Live birth [Recovered/Resolved]
